FAERS Safety Report 6226735-6 (Version None)
Quarter: 2009Q2

REPORT INFORMATION
  Report Type: 
  Country: None (occurrence: None)
  Receive Date: 20090612
  Receipt Date: 20090605
  Transmission Date: 20091009
  Serious: Yes (Other)
  Sender: FDA-Public Use
  Company Number: US-ROCHE-636793

PATIENT
  Sex: Male

DRUGS (3)
  1. CAPECITABINE [Suspect]
     Indication: DRUG USE FOR UNKNOWN INDICATION
     Route: 065
     Dates: start: 20090101, end: 20090301
  2. OXALIPLATIN [Concomitant]
     Route: 042
  3. EPIRUBICIN [Concomitant]
     Route: 042

REACTIONS (1)
  - DISEASE PROGRESSION [None]
